FAERS Safety Report 15083875 (Version 3)
Quarter: 2018Q3

REPORT INFORMATION
  Report Type: Report from Study
  Country: SG (occurrence: SG)
  Receive Date: 20180628
  Receipt Date: 20180719
  Transmission Date: 20181010
  Serious: Yes (Other)
  Sender: FDA-Public Use
  Company Number: SG-JNJFOC-20180634426

PATIENT
  Age: 49 Year
  Sex: Male
  Weight: 98 kg

DRUGS (11)
  1. TETRACYCLINE [Concomitant]
     Active Substance: TETRACYCLINE
     Route: 061
  2. ELOMET [Concomitant]
     Active Substance: MOMETASONE FUROATE
     Route: 061
  3. EXFORGE [Concomitant]
     Active Substance: AMLODIPINE BESYLATE\VALSARTAN
     Route: 048
  4. DAIVOBET [Concomitant]
     Active Substance: BETAMETHASONE DIPROPIONATE\CALCIPOTRIENE
     Route: 061
  5. RELVAR ELLIPTA [Concomitant]
     Active Substance: FLUTICASONE FUROATE\VILANTEROL TRIFENATATE
     Route: 055
     Dates: start: 20180430
  6. STELARA [Suspect]
     Active Substance: USTEKINUMAB
     Indication: PSORIASIS
     Route: 058
     Dates: start: 20141028, end: 20180403
  7. SINGULAIR [Concomitant]
     Active Substance: MONTELUKAST SODIUM
     Route: 048
     Dates: start: 20180430
  8. BETAMETHASONE VALERATE. [Concomitant]
     Active Substance: BETAMETHASONE VALERATE
     Route: 061
  9. BREO ELLIPTA [Concomitant]
     Active Substance: FLUTICASONE FUROATE\VILANTEROL TRIFENATATE
     Route: 055
     Dates: start: 20180430
  10. ENTECAVIR. [Concomitant]
     Active Substance: ENTECAVIR
     Route: 048
     Dates: start: 201311
  11. ACETYLCYSTEINE. [Concomitant]
     Active Substance: ACETYLCYSTEINE
     Route: 048
     Dates: start: 20180430

REACTIONS (1)
  - Lung adenocarcinoma stage III [Not Recovered/Not Resolved]

NARRATIVE: CASE EVENT DATE: 20170211
